FAERS Safety Report 5178243-1 (Version None)
Quarter: 2006Q4

REPORT INFORMATION
  Report Type: 
  Country: None (occurrence: None)
  Receive Date: 20061208
  Receipt Date: 20061127
  Transmission Date: 20070319
  Serious: Yes (Life-Threatening, Hospitalization)
  Sender: FDA-Public Use
  Company Number: GXKR2006HK07744

PATIENT
  Age: 2 Year
  Sex: Female

DRUGS (3)
  1. PARACETAMOL (NGX)(PARACETAMOL) UNKNOWN [Suspect]
     Indication: INCORRECT DOSE ADMINISTERED
     Dosage: UNK, UNK, UNKNOWN
  2. AMOXICILLIN [Concomitant]
  3. DOMPERIDONE (DOMPERIDONE) [Concomitant]

REACTIONS (13)
  - ACUTE HEPATIC FAILURE [None]
  - ASTHENIA [None]
  - GENERAL PHYSICAL HEALTH DETERIORATION [None]
  - GRAND MAL CONVULSION [None]
  - HYPOGLYCAEMIA [None]
  - INTERNATIONAL NORMALISED RATIO INCREASED [None]
  - OVERDOSE [None]
  - POISONING [None]
  - PUPILLARY LIGHT REFLEX TESTS ABNORMAL [None]
  - RESPIRATORY FAILURE [None]
  - SOMNOLENCE [None]
  - THERAPY NON-RESPONDER [None]
  - TOXICOLOGIC TEST ABNORMAL [None]
